FAERS Safety Report 21352826 (Version 1)
Quarter: 2022Q3

REPORT INFORMATION
  Report Type: Report from Study
  Country: AU (occurrence: AU)
  Receive Date: 20220920
  Receipt Date: 20220920
  Transmission Date: 20221027
  Serious: Yes (Disabling)
  Sender: FDA-Public Use
  Company Number: AU-BRISTOL-MYERS SQUIBB COMPANY-2022-108203

PATIENT
  Age: 45 Year
  Sex: Male
  Weight: 83.1 kg

DRUGS (17)
  1. LENALIDOMIDE [Suspect]
     Active Substance: LENALIDOMIDE
     Indication: Non-Hodgkin^s lymphoma
     Route: 048
     Dates: start: 20220719, end: 20220808
  2. RITUXIMAB [Suspect]
     Active Substance: RITUXIMAB
     Indication: Non-Hodgkin^s lymphoma
     Dosage: QS
     Route: 042
     Dates: start: 20220719, end: 20220809
  3. DYMISTA [Concomitant]
     Active Substance: AZELASTINE HYDROCHLORIDE\FLUTICASONE PROPIONATE
     Indication: Rhinitis allergic
     Dosage: SPRAY, 1 IN 1 AS REQUIRED
     Route: 045
     Dates: start: 1986
  4. VENTOLIN [Concomitant]
     Active Substance: ALBUTEROL SULFATE
     Indication: Asthma
     Dosage: 1 IN 1 AS REQUIRED
     Route: 055
     Dates: start: 1986
  5. OMEPRAZOLE [Concomitant]
     Active Substance: OMEPRAZOLE
     Indication: Gastrooesophageal reflux disease
     Dosage: 40 MG,1 IN 1 D)
     Route: 048
     Dates: start: 2018
  6. LORATADINE [Concomitant]
     Active Substance: LORATADINE
     Indication: Rhinitis allergic
     Dosage: 1 IN 1 AS REQUIRED
     Route: 048
     Dates: start: 1986
  7. LEXAPRO [Concomitant]
     Active Substance: ESCITALOPRAM OXALATE
     Indication: Anxiety
     Dosage: 10 MG,1 IN 1 D
     Route: 048
     Dates: start: 2022
  8. ASPIRIN [Concomitant]
     Active Substance: ASPIRIN
     Indication: Product used for unknown indication
     Route: 048
     Dates: start: 20220718
  9. SULFAMETHOXAZOLE\TRIMETHOPRIM [Concomitant]
     Active Substance: SULFAMETHOXAZOLE\TRIMETHOPRIM
     Indication: Product used for unknown indication
     Dosage: RESPRIM FORTE
     Route: 048
     Dates: start: 20220718
  10. ALLOPURINOL [Concomitant]
     Active Substance: ALLOPURINOL
     Indication: Product used for unknown indication
     Route: 048
     Dates: start: 20220717, end: 20220808
  11. IBUPROFEN [Concomitant]
     Active Substance: IBUPROFEN
     Indication: Influenza like illness
     Dosage: 1 IN 1 AS REQUIRED
     Route: 048
     Dates: start: 20220724, end: 20220730
  12. MOVICOL [Concomitant]
     Active Substance: POLYETHYLENE GLYCOL 3350\POTASSIUM CHLORIDE\SODIUM BICARBONATE\SODIUM CHLORIDE
     Indication: Constipation
     Dosage: 1 IN 1 AS REQUIRED
     Route: 048
     Dates: start: 20220719
  13. LORATADINE [Concomitant]
     Active Substance: LORATADINE
     Indication: Product used for unknown indication
     Dosage: 1 IN 1 AS REQUIRED
     Route: 048
     Dates: start: 20220719
  14. HYDROCORTISONE [Concomitant]
     Active Substance: HYDROCORTISONE
     Indication: Product used for unknown indication
     Dosage: 1 IN 1 AS REQUIRED
     Route: 042
     Dates: start: 20220719
  15. PROMETHAZINE HYDROCHLORIDE [Concomitant]
     Active Substance: PROMETHAZINE HYDROCHLORIDE
     Indication: Product used for unknown indication
     Dosage: 1 IN 1 AS REQUIRED
     Route: 042
     Dates: start: 20220719
  16. ACETAMINOPHEN [Concomitant]
     Active Substance: ACETAMINOPHEN
     Indication: Product used for unknown indication
     Dosage: 1 IN 1 AS REQUIRED
     Route: 048
     Dates: start: 20220719
  17. EVUSHELD [Concomitant]
     Active Substance: CILGAVIMAB\TIXAGEVIMAB
     Indication: Product used for unknown indication
     Dosage: CILGAVIMAB 150MG AND TIXAGEVIMAB 150MG INJECTION
     Route: 065

REACTIONS (1)
  - Cognitive disorder [Not Recovered/Not Resolved]

NARRATIVE: CASE EVENT DATE: 20220815
